FAERS Safety Report 23302512 (Version 1)
Quarter: 2023Q4

REPORT INFORMATION
  Report Type: Spontaneous
  Country: GB (occurrence: GB)
  Receive Date: 20231215
  Receipt Date: 20231215
  Transmission Date: 20240110
  Serious: Yes (Disabling, Other)
  Sender: FDA-Public Use
  Company Number: None

PATIENT
  Age: 41 Year
  Sex: Female
  Weight: 36 kg

DRUGS (2)
  1. MEDROXYPROGESTERONE ACETATE [Suspect]
     Active Substance: MEDROXYPROGESTERONE ACETATE
     Dosage: TAKE ONE TABLET THREE TIMES DAILY FROM THREE DA...
     Dates: start: 20231024, end: 20231113
  2. INVITA D3 [Concomitant]
     Dosage: TAKE ONE DAILY
     Dates: start: 20230105

REACTIONS (2)
  - Mood altered [Recovering/Resolving]
  - Haemorrhage [Recovering/Resolving]

NARRATIVE: CASE EVENT DATE: 20231207
